FAERS Safety Report 5087245-5 (Version None)
Quarter: 2006Q3

REPORT INFORMATION
  Report Type: 
  Country: None (occurrence: None)
  Receive Date: 20060821
  Receipt Date: 20060815
  Transmission Date: 20061208
  Serious: Yes (Hospitalization)
  Sender: FDA-Public Use
  Company Number: GBWYE717016AUG06

PATIENT
  Age: 83 Year
  Sex: Male

DRUGS (3)
  1. IBUPROFEN [Suspect]
     Indication: PAIN
     Dosage: 400MG, AS NECESSARY ORAL
     Route: 048
     Dates: start: 19960101, end: 20060628
  2. BENDROFLUMETHIAZIDE [Concomitant]
  3. SENNA           (SENNA) [Concomitant]

REACTIONS (1)
  - NONSPECIFIC REACTION [None]
